FAERS Safety Report 15633251 (Version 1)
Quarter: 2018Q4

REPORT INFORMATION
  Report Type: Spontaneous
  Country: FR (occurrence: FR)
  Receive Date: 20181119
  Receipt Date: 20181119
  Transmission Date: 20190205
  Serious: Yes (Other)
  Sender: FDA-Public Use
  Company Number: FR-JNJFOC-20181120436

PATIENT
  Sex: Female

DRUGS (1)
  1. XARELTO [Suspect]
     Active Substance: RIVAROXABAN
     Indication: ATRIAL FIBRILLATION
     Route: 048

REACTIONS (8)
  - Peripheral swelling [Unknown]
  - Vasodilatation [Unknown]
  - Dry mouth [Unknown]
  - Feeling cold [Unknown]
  - Adverse event [Unknown]
  - Skin discolouration [Unknown]
  - Chills [Unknown]
  - White blood cell count decreased [Unknown]
